FAERS Safety Report 7829753-7 (Version None)
Quarter: 2011Q4

REPORT INFORMATION
  Report Type: 
  Country: None (occurrence: None)
  Receive Date: 20111018
  Receipt Date: 20110812
  Transmission Date: 20120403
  Serious: Yes (Death)
  Sender: FDA-Public Use
  Company Number: REG_2011_204

PATIENT
  Sex: Male

DRUGS (1)
  1. REGLAN [Suspect]
     Dosage: (DF ORAL)
     Route: 048
     Dates: start: 19930101, end: 20001201

REACTIONS (4)
  - EXTRAPYRAMIDAL DISORDER [None]
  - ECONOMIC PROBLEM [None]
  - TARDIVE DYSKINESIA [None]
  - EMOTIONAL DISORDER [None]
